FAERS Safety Report 10240253 (Version 2)
Quarter: 2014Q2

REPORT INFORMATION
  Report Type: Spontaneous
  Country: JP (occurrence: JP)
  Receive Date: 20140617
  Receipt Date: 20140620
  Transmission Date: 20141212
  Serious: Yes (Other)
  Sender: FDA-Public Use
  Company Number: PHHY2014JP073166

PATIENT
  Sex: 0

DRUGS (7)
  1. DICLOFENAC [Suspect]
     Route: 064
  2. BETAMETHASONE [Suspect]
     Route: 064
  3. MORPHINE [Suspect]
     Route: 064
  4. MAGNESIUM SULFATE [Suspect]
     Route: 064
  5. NIFEDIPINE [Suspect]
     Route: 064
  6. UTEMERIN [Suspect]
     Route: 064
  7. BUPIVACAINE [Suspect]
     Route: 064

REACTIONS (2)
  - Premature baby [Unknown]
  - Foetal exposure during pregnancy [Unknown]
